FAERS Safety Report 24184259 (Version 6)
Quarter: 2024Q4

REPORT INFORMATION
  Report Type: Spontaneous
  Country: US (occurrence: US)
  Receive Date: 20240807
  Receipt Date: 20241231
  Transmission Date: 20250115
  Serious: Yes (Other)
  Sender: BIOVITRUM
  Company Number: US-BIOVITRUM-2024-US-010683

PATIENT
  Age: 66 Year
  Sex: Female

DRUGS (2)
  1. VONJO [Suspect]
     Active Substance: PACRITINIB
     Indication: Immune thrombocytopenia
     Dosage: TWICE A DAY
     Route: 048
     Dates: start: 20240724
  2. FUROSEMIDE [Concomitant]
     Active Substance: FUROSEMIDE
     Indication: Product used for unknown indication
     Dosage: ONCE DAILY

REACTIONS (9)
  - Off label use [Not Recovered/Not Resolved]
  - Diarrhoea [Unknown]
  - Nasopharyngitis [Unknown]
  - Headache [Unknown]
  - Product dose omission issue [Unknown]
  - Insurance issue [Unknown]
  - Platelet count decreased [Not Recovered/Not Resolved]
  - Respiration abnormal [Unknown]
  - Fatigue [Unknown]

NARRATIVE: CASE EVENT DATE: 20240724
